FAERS Safety Report 9618822 (Version 2)
Quarter: 2013Q4

REPORT INFORMATION
  Report Type: Spontaneous
  Country: US (occurrence: US)
  Receive Date: 20131014
  Receipt Date: 20131203
  Transmission Date: 20140711
  Serious: Yes (Life-Threatening)
  Sender: FDA-Public Use
  Company Number: US-BAYER-2013-121599

PATIENT
  Age: 26 Year
  Sex: Female

DRUGS (2)
  1. MIRENA [Suspect]
     Indication: CONTRACEPTION
     Dosage: 20 MCG/24HR, CONT
     Route: 015
     Dates: start: 20110228, end: 201306
  2. PHENTERMINE HYDROCHLORIDE [Concomitant]
     Dosage: 37.5 MG, UNK
     Dates: start: 20130408

REACTIONS (12)
  - Abdominal pain lower [None]
  - Menorrhagia [None]
  - Depression [None]
  - Uterine perforation [None]
  - Injury [None]
  - General physical health deterioration [None]
  - Anxiety [None]
  - Anhedonia [None]
  - Emotional distress [None]
  - Pain [None]
  - Device dislocation [None]
  - Device issue [None]
